FAERS Safety Report 26163566 (Version 1)
Quarter: 2025Q4

REPORT INFORMATION
  Report Type: Spontaneous
  Country: CA (occurrence: CA)
  Receive Date: 20251216
  Receipt Date: 20251216
  Transmission Date: 20260117
  Serious: Yes (Other)
  Sender: NOVO NORDISK
  Company Number: CA-NOVOPROD-1471436

PATIENT

DRUGS (8)
  1. WEGOVY [Suspect]
     Active Substance: SEMAGLUTIDE
     Dosage: 2.4 MG, QW
     Route: 058
  2. WEGOVY [Suspect]
     Active Substance: SEMAGLUTIDE
     Dosage: 2.4 MG, QW
     Route: 058
  3. WEGOVY [Suspect]
     Active Substance: SEMAGLUTIDE
     Dosage: 2.4 MG, QW
     Route: 058
  4. WEGOVY [Suspect]
     Active Substance: SEMAGLUTIDE
     Indication: Weight control
     Dosage: 2.4 MG
     Dates: start: 202501, end: 202503
  5. WEGOVY [Suspect]
     Active Substance: SEMAGLUTIDE
     Dosage: 2.4 MG, QW
     Route: 058
  6. WEGOVY [Suspect]
     Active Substance: SEMAGLUTIDE
     Dosage: 1.7 MG, QW
  7. WEGOVY [Suspect]
     Active Substance: SEMAGLUTIDE
     Indication: Weight control
     Dosage: 1.7 MG
  8. LIPITOR [Concomitant]
     Active Substance: ATORVASTATIN CALCIUM
     Indication: Blood cholesterol increased
     Dosage: 10 MG, QD
     Dates: start: 20230511

REACTIONS (1)
  - Neuropathy peripheral [Recovered/Resolved]

NARRATIVE: CASE EVENT DATE: 20250301
